FAERS Safety Report 5808541-7 (Version None)
Quarter: 2008Q3

REPORT INFORMATION
  Report Type: 
  Country: None (occurrence: None)
  Receive Date: 20080702
  Receipt Date: 20080404
  Transmission Date: 20090109
  Serious: Yes (Other)
  Sender: FDA-Public Use
  Company Number: US-WYE-H03497308

PATIENT
  Age: 18 Year
  Sex: Male
  Weight: 68.1 kg

DRUGS (1)
  1. ADVIL [Suspect]
     Indication: HEADACHE
     Dosage: 2 TABLET 1X PER 1 DAY, ORAL
     Route: 048
     Dates: end: 20080403

REACTIONS (2)
  - SWOLLEN TONGUE [None]
  - URTICARIA [None]
